FAERS Safety Report 4873762-7 (Version None)
Quarter: 2005Q4

REPORT INFORMATION
  Report Type: 
  Country: None (occurrence: None)
  Receive Date: 20051201
  Receipt Date: 20050804
  Transmission Date: 20060501
  Serious: No
  Sender: FDA-Public Use
  Company Number: 2005PV000962

PATIENT
  Age: 50 Year
  Sex: Male
  Weight: 106.5953 kg

DRUGS (8)
  1. BYETTA [Suspect]
     Indication: DIABETES MELLITUS NON-INSULIN-DEPENDENT
     Dosage: 5 MCG; BID; SC
     Route: 058
     Dates: start: 20050728, end: 20050803
  2. AVANDAMET [Concomitant]
  3. ALTACE [Concomitant]
  4. LIPITOR [Concomitant]
  5. LASIX [Concomitant]
  6. NEXIUM [Concomitant]
  7. LUNESTA [Concomitant]
  8. ASPIRIN [Concomitant]

REACTIONS (4)
  - DECREASED APPETITE [None]
  - GASTROOESOPHAGEAL REFLUX DISEASE [None]
  - NAUSEA [None]
  - ORAL INTAKE REDUCED [None]
